FAERS Safety Report 15435108 (Version 1)
Quarter: 2018Q3

REPORT INFORMATION
  Report Type: Spontaneous
  Country: US (occurrence: US)
  Receive Date: 20180924
  Receipt Date: 20180924
  Transmission Date: 20181010
  Serious: No
  Sender: FDA-Public Use
  Company Number: None

PATIENT
  Age: 71 Year
  Sex: Male
  Weight: 66.6 kg

DRUGS (2)
  1. OCREVUS [Suspect]
     Active Substance: OCRELIZUMAB
     Indication: MULTIPLE SCLEROSIS
     Dosage: ?          OTHER FREQUENCY:EVERY 6 MONTHS;?
     Route: 041
     Dates: start: 20180924, end: 20180924
  2. OCREVUS [Concomitant]
     Active Substance: OCRELIZUMAB
     Dates: start: 20180924, end: 20180924

REACTIONS (5)
  - Infusion related reaction [None]
  - Fall [None]
  - Head injury [None]
  - Nausea [None]
  - Dizziness [None]

NARRATIVE: CASE EVENT DATE: 20180924
